FAERS Safety Report 19189567 (Version 1)
Quarter: 2021Q2

REPORT INFORMATION
  Report Type: Spontaneous
  Country: US (occurrence: US)
  Receive Date: 20210428
  Receipt Date: 20210428
  Transmission Date: 20210717
  Serious: Yes (Hospitalization)
  Sender: FDA-Public Use
  Company Number: None

PATIENT
  Age: 75 Year
  Sex: Male

DRUGS (2)
  1. MELOXICAM (MELOXICAM 15MG TAB) [Suspect]
     Active Substance: MELOXICAM
     Indication: PAIN
     Route: 048
     Dates: start: 20210326, end: 20210411
  2. ASPIRIN (ASPIRIN 81MG TAB,EC) [Suspect]
     Active Substance: ASPIRIN
     Indication: DEEP VEIN THROMBOSIS
     Route: 048
     Dates: start: 20210326, end: 20210413

REACTIONS (8)
  - Gastritis [None]
  - Large intestinal ulcer [None]
  - Haemorrhoids [None]
  - Constipation [None]
  - Gastric ischaemia [None]
  - Intestinal mass [None]
  - Gastritis erosive [None]
  - Gastric haemorrhage [None]

NARRATIVE: CASE EVENT DATE: 20210411
